FAERS Safety Report 8605938-7 (Version None)
Quarter: 2012Q3

REPORT INFORMATION
  Report Type: 
  Country: None (occurrence: None)
  Receive Date: 20120820
  Receipt Date: 20120809
  Transmission Date: 20120928
  Serious: Yes (Hospitalization)
  Sender: FDA-Public Use
  Company Number: JP-ROCHE-1083583

PATIENT
  Sex: Male
  Weight: 53 kg

DRUGS (9)
  1. FLUOROURACIL [Concomitant]
  2. LEVOLEUCOVORIN CALCIUM [Concomitant]
  3. AVASTIN [Suspect]
     Indication: COLON CANCER METASTATIC
     Dosage: DOSAGE IS UNCERTAIN.
     Route: 041
     Dates: start: 20100729, end: 20100909
  4. ISOVORIN [Concomitant]
     Indication: COLON CANCER METASTATIC
     Route: 041
     Dates: start: 20100701, end: 20100909
  5. FLUOROURACIL [Concomitant]
     Indication: COLON CANCER METASTATIC
     Dosage: DOSAGE IS UNCERTAIN.
     Route: 041
     Dates: start: 20100701, end: 20100909
  6. OXALIPLATIN [Concomitant]
     Indication: COLON CANCER METASTATIC
     Route: 041
     Dates: start: 20100701, end: 20100909
  7. DECADRON PHOSPHATE [Suspect]
     Indication: PRODUCT USED FOR UNKNOWN INDICATION
     Route: 065
     Dates: start: 20100729, end: 20100909
  8. KYTRIL [Concomitant]
     Route: 065
     Dates: start: 20100729, end: 20100909
  9. OXALIPLATIN [Concomitant]

REACTIONS (2)
  - PERITONITIS [None]
  - GASTRIC PERFORATION [None]
